FAERS Safety Report 7764563-0 (Version None)
Quarter: 2011Q3

REPORT INFORMATION
  Report Type: 
  Country: None (occurrence: None)
  Receive Date: 20110921
  Receipt Date: 20110909
  Transmission Date: 20111222
  Serious: Yes (Hospitalization)
  Sender: FDA-Public Use
  Company Number: FR-PFIZER INC-2011218705

PATIENT
  Age: 64 Year
  Sex: Male

DRUGS (9)
  1. IVABRADINE [Concomitant]
     Route: 048
  2. PANTOPRAZOLE [Suspect]
     Dosage: 40 MG DAILY
     Route: 042
     Dates: start: 20110805, end: 20110822
  3. FUROSEMIDE [Concomitant]
     Dosage: UNK
     Route: 048
     Dates: start: 20110807
  4. SPASFON [Concomitant]
  5. PERINDOPRIL ERBUMINE [Suspect]
     Dosage: 2.5 MG DAILY
  6. INSPRA [Concomitant]
     Dosage: 25 MG DAILY
  7. CRESTOR [Concomitant]
     Route: 048
  8. PROZAC [Concomitant]
     Dosage: 20 MG DAILY
     Route: 048
  9. CALCIPARINE [Concomitant]
     Dosage: UNK
     Route: 058
     Dates: start: 20110807

REACTIONS (1)
  - NEUTROPENIA [None]
